FAERS Safety Report 23047908 (Version 2)
Quarter: 2023Q4

REPORT INFORMATION
  Report Type: Spontaneous
  Country: FR (occurrence: None)
  Receive Date: 20231010
  Receipt Date: 20231012
  Transmission Date: 20240109
  Serious: Yes (Hospitalization)
  Sender: FDA-Public Use
  Company Number: FR-Orion Corporation ORION PHARMA-TREX2023-0227

PATIENT
  Age: 13 Year
  Sex: Male
  Weight: 76 kg

DRUGS (9)
  1. METHOTREXATE SODIUM [Suspect]
     Active Substance: METHOTREXATE SODIUM
     Indication: B-cell type acute leukaemia
     Dates: start: 20210526, end: 20220102
  2. METHOTREXATE SODIUM [Suspect]
     Active Substance: METHOTREXATE SODIUM
     Dosage: AS A SINGLE DOSE ONCE A WEEK ON SUNDAYS
  3. VINCRISTINE [Concomitant]
     Active Substance: VINCRISTINE
     Indication: B-cell type acute leukaemia
     Dosage: CYCLICAL
     Dates: start: 20210528, end: 20220102
  4. DEXAMETHASONE [Concomitant]
     Active Substance: DEXAMETHASONE
     Indication: B-cell type acute leukaemia
     Dosage: CYCLICAL
     Dates: start: 20210528, end: 20220102
  5. MERCAPTOPURINE [Concomitant]
     Active Substance: MERCAPTOPURINE
     Indication: B-cell type acute leukaemia
     Dosage: STRENGTH: 20 MG/ML
     Dates: start: 20210526, end: 20220105
  6. MERCAPTOPURINE [Concomitant]
     Active Substance: MERCAPTOPURINE
     Dosage: AT THE END OF THE DAY
  7. PURINETHOL [Concomitant]
     Active Substance: MERCAPTOPURINE
  8. CORTICOSTEROID NOS [Concomitant]
     Active Substance: CORTICOSTEROID NOS
     Dosage: MAINTENANCE TREATMENT
  9. PENTACARINATE [Concomitant]
     Dates: start: 20211013

REACTIONS (3)
  - Cholecystitis [Recovered/Resolved with Sequelae]
  - Overdose [Unknown]
  - Inappropriate schedule of product administration [Unknown]

NARRATIVE: CASE EVENT DATE: 20210801
